FAERS Safety Report 8179747-X (Version None)
Quarter: 2012Q1

REPORT INFORMATION
  Report Type: 
  Country: None (occurrence: None)
  Receive Date: 20120302
  Receipt Date: 20120223
  Transmission Date: 20120608
  Serious: Yes (Hospitalization, Other)
  Sender: FDA-Public Use
  Company Number: US-BAYER-2011-107577

PATIENT
  Age: 47 Year
  Sex: Female
  Weight: 68.027 kg

DRUGS (5)
  1. FEXOFENADINE HYDROCHLORIDE [Concomitant]
     Indication: RHINITIS ALLERGIC
     Dosage: 180 MG, PRN 1 TABLET DAILY
     Route: 048
     Dates: start: 20100204
  2. OMEPRAZOLE [Concomitant]
     Dosage: 20 MG, CAPSULE DELAYED RELEASE 1 TABLET DAILY
     Route: 048
     Dates: start: 20100204
  3. YAZ [Suspect]
     Dosage: UNK
     Dates: start: 20080301, end: 20081201
  4. FERROUS SULFATE TAB [Concomitant]
     Dosage: 324 MG, 1 TABLET TWICE DAILY
     Route: 048
     Dates: start: 20100204
  5. LISINOPRIL [Concomitant]
     Dosage: 10 MG, 1 TABLET DAILY
     Route: 048
     Dates: start: 20100204

REACTIONS (5)
  - CHOLELITHIASIS [None]
  - PAIN [None]
  - EMOTIONAL DISTRESS [None]
  - BLOOD PRESSURE INCREASED [None]
  - CHOLECYSTITIS CHRONIC [None]
